FAERS Safety Report 9399523 (Version 1)
Quarter: 2013Q3

REPORT INFORMATION
  Report Type: Spontaneous
  Country: GB (occurrence: GB)
  Receive Date: 20130715
  Receipt Date: 20130715
  Transmission Date: 20140515
  Serious: Yes (Disabling, Other)
  Sender: FDA-Public Use
  Company Number: GB-RANBAXY-2013R1-70934

PATIENT
  Age: 33 Year
  Sex: Male
  Weight: 102 kg

DRUGS (6)
  1. FLUOXETINE [Suspect]
     Indication: DEPRESSED MOOD
     Dosage: UNK
     Route: 048
     Dates: start: 20130316, end: 20130612
  2. ZOMIG [Suspect]
     Indication: MIGRAINE
     Dosage: UNK
     Route: 048
     Dates: start: 20130611, end: 20130611
  3. ALOE VERA [Concomitant]
     Indication: PRODUCT USED FOR UNKNOWN INDICATION
     Route: 065
  4. MIGRALEVE PINK [Concomitant]
     Indication: MIGRAINE
     Route: 065
  5. MIGRALEVE YELLOW [Concomitant]
     Indication: MIGRAINE
     Route: 065
  6. SERETIDE [Concomitant]
     Indication: PRODUCT USED FOR UNKNOWN INDICATION
     Route: 065

REACTIONS (9)
  - Chest discomfort [Unknown]
  - Drug interaction [Unknown]
  - Palpitations [Unknown]
  - Chills [Unknown]
  - Serotonin syndrome [Recovered/Resolved with Sequelae]
  - Dyspnoea [Unknown]
  - Feeling abnormal [Not Recovered/Not Resolved]
  - Tremor [Unknown]
  - Abasia [Unknown]
